FAERS Safety Report 9664959 (Version 2)
Quarter: 2013Q4

REPORT INFORMATION
  Report Type: Report from Study
  Country: NZ (occurrence: NZ)
  Receive Date: 20131101
  Receipt Date: 20131211
  Transmission Date: 20140711
  Serious: Yes (Hospitalization)
  Sender: FDA-Public Use
  Company Number: NZ-ABBVIE-13P-118-1163421-00

PATIENT
  Age: 52 Year
  Sex: Male

DRUGS (55)
  1. HUMIRA [Suspect]
     Indication: CROHN^S DISEASE
     Route: 058
     Dates: start: 20091009, end: 20091009
  2. HUMIRA [Suspect]
     Dosage: WEEK 2
     Route: 058
  3. HUMIRA [Suspect]
     Route: 058
     Dates: end: 20131001
  4. HUMIRA [Suspect]
     Route: 058
     Dates: start: 20131026, end: 20131026
  5. HUMIRA [Suspect]
     Route: 058
     Dates: start: 20131122
  6. GABAPENTIN [Concomitant]
     Indication: ABDOMINAL PAIN
     Dosage: 300 - 500 MG TID
     Dates: start: 20091027
  7. METHADONE [Concomitant]
     Indication: ABDOMINAL PAIN
     Dosage: 5 - 20 MG TID
     Dates: start: 20091029
  8. METHADONE [Concomitant]
     Indication: ABDOMINAL PAIN
     Dates: start: 20101220, end: 20101225
  9. METHADONE [Concomitant]
     Indication: PAIN
     Dosage: 5 -15 MG TID
     Dates: start: 20101224, end: 20111012
  10. METHADONE [Concomitant]
     Dosage: 5 -15 MG TID
     Dates: start: 20111013
  11. MORPHINE [Concomitant]
     Indication: ABDOMINAL PAIN
     Dosage: 10 - 20 MG EVERY 30 MINUTES PRN
     Dates: start: 20091030
  12. PARACETAMOL [Concomitant]
     Indication: ABDOMINAL PAIN
     Dosage: QID AS REQUIRED
     Dates: start: 20091029
  13. PARACETAMOL [Concomitant]
     Indication: PAIN
  14. PARACETAMOL [Concomitant]
     Indication: PYREXIA
  15. PARACETAMOL [Concomitant]
     Indication: LOWER RESPIRATORY TRACT INFECTION
  16. PARACETAMOL [Concomitant]
     Indication: LOWER RESPIRATORY TRACT INFECTION
  17. PREDNISONE [Concomitant]
     Indication: CROHN^S DISEASE
     Route: 048
     Dates: start: 20091029
  18. PREDNISONE [Concomitant]
     Indication: RESPIRATORY TRACT OEDEMA
     Route: 048
     Dates: start: 20100127, end: 20101205
  19. PREDNISONE [Concomitant]
     Indication: LOWER RESPIRATORY TRACT INFECTION
     Route: 048
     Dates: start: 20101219, end: 20101224
  20. PREDNISONE [Concomitant]
     Indication: CROHN^S DISEASE
     Route: 048
     Dates: start: 20101224, end: 20110128
  21. PREDNISONE [Concomitant]
     Indication: CROHN^S DISEASE
     Route: 048
     Dates: start: 20100128, end: 20100425
  22. PREDNISONE [Concomitant]
     Indication: MUSCULOSKELETAL CHEST PAIN
     Route: 048
     Dates: start: 20100429, end: 20110413
  23. PREDNISONE [Concomitant]
     Indication: CHRONIC OBSTRUCTIVE PULMONARY DISEASE
     Route: 048
     Dates: start: 20110413, end: 20110427
  24. PREDNISONE [Concomitant]
     Indication: CROHN^S DISEASE
     Route: 048
     Dates: start: 20110427, end: 20110701
  25. PREDNISONE [Concomitant]
     Indication: ERYTHEMA NODOSUM
     Dosage: DOSE TITRATION DONE EVERY 3 DAYS, WEANED 5MG EVERY 3 DAYS DOWN TO 10MG ON 12 JUL 2011
     Route: 048
     Dates: start: 20110701, end: 20110729
  26. PREDNISONE [Concomitant]
     Route: 048
     Dates: start: 20110909, end: 20110912
  27. PREDNISONE [Concomitant]
     Dosage: TITRATED DOSING TO TAPE 5MG EVERY 5 DAYS DOWN TO 20MG
     Route: 048
     Dates: start: 20110912, end: 20111012
  28. PREDNISONE [Concomitant]
     Dosage: TAPER DOSE BY 2.5MG WEEKLY
     Route: 048
     Dates: start: 20111013, end: 20120208
  29. PREDNISONE [Concomitant]
     Route: 048
     Dates: start: 20121219, end: 20130223
  30. PREDNISONE [Concomitant]
     Route: 048
     Dates: start: 20130224, end: 20130910
  31. PREDNISONE [Concomitant]
     Route: 048
     Dates: start: 20130618, end: 20130620
  32. PREDNISONE [Concomitant]
     Route: 048
     Dates: start: 20130621, end: 20130704
  33. PREDNISONE [Concomitant]
     Dosage: 10 - 20 MG QD
     Route: 048
     Dates: start: 20130705, end: 20130829
  34. PREDNISONE [Concomitant]
     Route: 048
     Dates: start: 20130831, end: 20130906
  35. PREDNISONE [Concomitant]
     Route: 048
     Dates: start: 20130907, end: 20130910
  36. PREDNISONE [Concomitant]
     Route: 048
     Dates: start: 20130911, end: 20130917
  37. PREDNISONE [Concomitant]
     Route: 048
     Dates: start: 20130918
  38. CATAPRESS [Concomitant]
     Indication: HYPERTENSION
     Route: 061
     Dates: start: 20091027
  39. ENSURE [Concomitant]
     Indication: NUTRITIONAL SUPPLEMENTATION
     Dates: start: 20091029
  40. LACTULOSE [Concomitant]
     Indication: CONSTIPATION PROPHYLAXIS
     Dosage: 20 - 40 ML / PRN
     Dates: start: 20091029
  41. NICOTINE [Concomitant]
     Indication: SMOKING CESSATION THERAPY
     Dosage: 21 MG / 24 QD
     Dates: start: 20111011
  42. NICOTINE [Concomitant]
     Indication: EX-TOBACCO USER
  43. NICOTINE [Concomitant]
     Indication: EX-TOBACCO USER
  44. SALBUTAMOL [Concomitant]
     Indication: ASTHMA
     Dosage: 100 - 200 MCG BID
     Dates: start: 20101223
  45. SALBUTAMOL [Concomitant]
     Indication: RESPIRATORY TRACT OEDEMA
  46. SALBUTAMOL [Concomitant]
     Indication: ASTHMA
  47. SALBUTAMOL [Concomitant]
     Indication: LOWER RESPIRATORY TRACT INFECTION
  48. FLIXOTIDE [Concomitant]
     Indication: RESPIRATORY TRACT OEDEMA
     Dosage: 80-100 MCG BID
     Dates: start: 20101223
  49. CHOLECALCIFEROL [Concomitant]
     Indication: BONE DISORDER
     Dates: start: 20101112
  50. MORPHINE SULFATE [Concomitant]
     Indication: MUSCULOSKELETAL CHEST PAIN
     Dosage: QID AS REQUIRED
     Dates: start: 20110705
  51. MORPHINE SULFATE [Concomitant]
     Indication: ABDOMINAL PAIN
  52. METOCLOPRAMIDE HYDROCHLORIDE [Concomitant]
     Indication: NAUSEA
     Dosage: 8 HOURLY TO QID AS REQUIRED
     Dates: start: 20110701
  53. VITAMIN D [Concomitant]
     Indication: VITAMIN D DEFICIENCY
     Dosage: 1.25
     Dates: start: 20130123
  54. VITAMIN D [Concomitant]
     Indication: PROPHYLAXIS
  55. CODEINE PHOSPHATE [Concomitant]
     Indication: PAIN
     Dosage: 30-60MG 4-6 HOURLY AS REQUIRED
     Dates: start: 20120126

REACTIONS (6)
  - Breast cellulitis [Not Recovered/Not Resolved]
  - Breast cellulitis [Not Recovered/Not Resolved]
  - Mastitis [Not Recovered/Not Resolved]
  - Cellulitis [Not Recovered/Not Resolved]
  - Cellulitis [Recovered/Resolved]
  - Rash [Recovered/Resolved]
